FAERS Safety Report 22199023 (Version 4)
Quarter: 2023Q2

REPORT INFORMATION
  Report Type: Report from Study
  Country: ES (occurrence: None)
  Receive Date: 20230411
  Receipt Date: 20230628
  Transmission Date: 20230721
  Serious: Yes (Hospitalization)
  Sender: FDA-Public Use
  Company Number: ES-ROCHE-3240796

PATIENT
  Age: 48 Year
  Sex: Female

DRUGS (15)
  1. ATEZOLIZUMAB [Suspect]
     Active Substance: ATEZOLIZUMAB
     Indication: Non-small cell lung cancer
     Dosage: CYCLE 1 DAY 1?THE SUBJECT RECEIVED MOST RECENT DOSE OF ATEZOLIZUMAB PRIOR TO SKIN TOXICITY ON THE SA
     Route: 041
     Dates: start: 20221118, end: 20221202
  2. GB-1211 [Suspect]
     Active Substance: GB-1211
     Indication: Non-small cell lung cancer
     Dosage: CYCLE 1 DAY 1
     Route: 048
     Dates: start: 20221118
  3. GB-1211 [Suspect]
     Active Substance: GB-1211
     Dosage: CYCLE 1 DAY 1?ON 25/NOV/2022, MOST RECENT DOSE OF STUDY DRUG GB1211 PRIOR TO THE EVENT SKIN TOXICITY
     Route: 048
     Dates: start: 20221125, end: 20221202
  4. AMITRIPTYLINE [Concomitant]
     Active Substance: AMITRIPTYLINE
     Dates: start: 20211209
  5. AMITRIPTYLINE [Concomitant]
     Active Substance: AMITRIPTYLINE
     Dates: start: 20220602
  6. CALCIFEDIOL MONOHYDRATE [Concomitant]
  7. OMEPRAZOLE [Concomitant]
     Active Substance: OMEPRAZOLE
  8. SIMVASTATIN [Concomitant]
     Active Substance: SIMVASTATIN
     Dates: start: 202207
  9. ZOLMITRIPTAN [Concomitant]
     Active Substance: ZOLMITRIPTAN
     Dates: start: 20221013
  10. ALMAGATE [Concomitant]
     Active Substance: ALMAGATE
     Dates: start: 20221013
  11. BUDESONIDE [Concomitant]
     Active Substance: BUDESONIDE
     Dates: start: 20221125
  12. LORAZEPAM [Concomitant]
     Active Substance: LORAZEPAM
     Dates: start: 20221121
  13. CEFDITOREN PIVOXIL [Concomitant]
     Active Substance: CEFDITOREN PIVOXIL
     Dates: start: 20221125, end: 20221130
  14. METHYLPREDNISOLONE [Concomitant]
     Active Substance: METHYLPREDNISOLONE
     Route: 042
     Dates: start: 20221202, end: 20221205
  15. CODEINE [Concomitant]
     Active Substance: CODEINE
     Dates: start: 20221121, end: 20221202

REACTIONS (1)
  - Skin toxicity [Recovered/Resolved]

NARRATIVE: CASE EVENT DATE: 20221127
